FAERS Safety Report 9016262 (Version 3)
Quarter: 2013Q1

REPORT INFORMATION
  Report Type: Report from Study
  Country: JP (occurrence: JP)
  Receive Date: 20130116
  Receipt Date: 20130314
  Transmission Date: 20140127
  Serious: Yes (Life-Threatening, Hospitalization)
  Sender: FDA-Public Use
  Company Number: JP-B.I. PHARMACEUTICALS,INC./RIDGEFIELD-2013-BI-00561NB

PATIENT
  Age: 79 Year
  Sex: Male
  Weight: 58 kg

DRUGS (6)
  1. PRAZAXA [Suspect]
     Indication: ATRIAL FIBRILLATION
     Dosage: 220 MG
     Route: 048
     Dates: start: 20120609, end: 20121028
  2. PRAZAXA [Suspect]
     Indication: PROPHYLAXIS
  3. PRAZAXA [Suspect]
     Indication: PROPHYLAXIS
  4. LUPRAC [Concomitant]
     Dosage: 8 MG
     Route: 048
  5. APORASNON [Concomitant]
     Dosage: 25 MG
     Route: 048
  6. PIMOBENDAN [Concomitant]
     Dosage: 2.5 MG
     Route: 048

REACTIONS (3)
  - Sepsis [Recovered/Resolved]
  - Disseminated intravascular coagulation [Recovered/Resolved]
  - Pyelonephritis [Recovered/Resolved]
